FAERS Safety Report 10986424 (Version 2)
Quarter: 2015Q2

REPORT INFORMATION
  Report Type: Spontaneous
  Country: CH (occurrence: None)
  Receive Date: 20150402
  Receipt Date: 20150415
  Transmission Date: 20150821
  Serious: Yes (Death, Other)
  Sender: FDA-Public Use
  Company Number: 2015SGN00472

PATIENT
  Sex: Male

DRUGS (8)
  1. SUPRADYN (FERROUS CARBONATE, MAGNESIUM PHOSPHATE MONOBASIC, MANGANESE SULFATE, MOLYBDENUM SESQUIOXIDE, SODIUM BORATE, VITAMINS NOS, ZINC SULFATE) [Concomitant]
  2. SANDIMMUN CONC (CICLOSPORIN) [Concomitant]
  3. NOPIL (SULFAMETHOXAZOLE, TRIMETHOPRIM) [Concomitant]
     Active Substance: SULFAMETHOXAZOLE\TRIMETHOPRIM
  4. MAGNESIUM [Concomitant]
     Active Substance: MAGNESIUM
  5. ADCETRIS [Suspect]
     Active Substance: BRENTUXIMAB VEDOTIN
     Indication: HODGKIN^S DISEASE LYMPHOCYTE DEPLETION STAGE II SITE UNSPECIFIED
     Route: 042
     Dates: start: 20101213, end: 20110628
  6. VALTREX [Concomitant]
     Active Substance: VALACYCLOVIR HYDROCHLORIDE
  7. PANTOL (PANTOPRAZOLE SODIUM SESQUIHYDRATE) [Concomitant]
  8. VFEND (VORICONAZOLE) [Concomitant]

REACTIONS (3)
  - Acute respiratory distress syndrome [None]
  - Pneumonia [None]
  - Sepsis [None]

NARRATIVE: CASE EVENT DATE: 201110
